FAERS Safety Report 12098570 (Version 1)
Quarter: 2016Q1

REPORT INFORMATION
  Report Type: Spontaneous
  Country: GR (occurrence: GR)
  Receive Date: 20160222
  Receipt Date: 20160222
  Transmission Date: 20160526
  Serious: Yes (Other)
  Sender: FDA-Public Use
  Company Number: GR-ROCHE-1713511

PATIENT
  Age: 60 Year
  Sex: Male

DRUGS (7)
  1. CRESTOR [Concomitant]
     Active Substance: ROSUVASTATIN CALCIUM
     Route: 065
  2. ESBRIET [Suspect]
     Active Substance: PIRFENIDONE
     Route: 048
  3. LOPRESSOR [Concomitant]
     Active Substance: METOPROLOL TARTRATE
     Route: 065
  4. SALOSPIR [Concomitant]
     Active Substance: ASPIRIN
     Route: 065
  5. ZURCAZOL [Concomitant]
     Active Substance: PANTOPRAZOLE SODIUM
     Route: 065
  6. ESBRIET [Suspect]
     Active Substance: PIRFENIDONE
     Indication: IDIOPATHIC PULMONARY FIBROSIS
     Dosage: ONE CAPSULE THRICE DAILY
     Route: 048
  7. ESBRIET [Suspect]
     Active Substance: PIRFENIDONE
     Dosage: TWO CAPSULE THRICE DAILY
     Route: 048

REACTIONS (6)
  - Dry mouth [Recovering/Resolving]
  - Nasal dryness [Recovering/Resolving]
  - Vertigo [Recovered/Resolved]
  - Transaminases increased [Unknown]
  - Gamma-glutamyltransferase increased [Unknown]
  - Ulcer [Recovering/Resolving]
